FAERS Safety Report 5868945-3 (Version None)
Quarter: 2008Q3

REPORT INFORMATION
  Report Type: 
  Country: None (occurrence: None)
  Receive Date: 20080902
  Receipt Date: 20080902
  Transmission Date: 20090109
  Serious: Yes (Life-Threatening, Hospitalization, Other)
  Sender: FDA-Public Use
  Company Number: None

PATIENT
  Age: 37 Year
  Sex: Female
  Weight: 62.5964 kg

DRUGS (2)
  1. CYMBALTA [Suspect]
     Indication: DEPRESSION
     Dosage: 30MG ONCE/NIGHTLY PO
     Route: 048
     Dates: start: 20080828, end: 20080831
  2. CYTOMEL [Suspect]
     Indication: DEPRESSION
     Dosage: 25 MCG. ONCE/DAILY PO
     Route: 048
     Dates: start: 20080828, end: 20080831

REACTIONS (18)
  - ABDOMINAL PAIN UPPER [None]
  - AGITATION [None]
  - ALTERED VISUAL DEPTH PERCEPTION [None]
  - DIARRHOEA [None]
  - HEADACHE [None]
  - HEART RATE INCREASED [None]
  - HYPERHIDROSIS [None]
  - HYPERTENSION [None]
  - HYPERTHERMIA [None]
  - HYPOAESTHESIA [None]
  - INSOMNIA [None]
  - MUSCLE SPASMS [None]
  - MUSCLE TWITCHING [None]
  - MYDRIASIS [None]
  - NAUSEA [None]
  - PARAESTHESIA [None]
  - SEROTONIN SYNDROME [None]
  - SPEECH DISORDER [None]
